FAERS Safety Report 6258675-0 (Version None)
Quarter: 2009Q3

REPORT INFORMATION
  Report Type: 
  Country: None (occurrence: None)
  Receive Date: 20090707
  Receipt Date: 20090625
  Transmission Date: 20100115
  Serious: Yes (Hospitalization)
  Sender: FDA-Public Use
  Company Number: HU-PFIZER INC-2009233574

PATIENT
  Age: 68 Year

DRUGS (9)
  1. LYRICA [Suspect]
     Indication: DIABETIC NEUROPATHY
     Dosage: 75 MG, 2X/DAY
     Route: 048
     Dates: start: 20090622
  2. SYNCUMAR [Interacting]
     Indication: ATRIAL FIBRILLATION
     Dosage: UNK
     Route: 048
  3. BETAXOLOL [Concomitant]
     Dosage: UNK
     Route: 048
  4. FURON [Concomitant]
     Dosage: UNK
     Route: 048
  5. SPIRONOLACTONE [Concomitant]
     Dosage: UNK
     Route: 048
  6. CARDIL [Concomitant]
     Dosage: UNK
     Route: 048
  7. METFORMIN [Concomitant]
     Route: 048
  8. HUMULIN R [Concomitant]
     Dosage: UNK
     Route: 058
  9. AUGMENTIN [Concomitant]
     Dosage: UNK
     Route: 048
     Dates: start: 20090610, end: 20090617

REACTIONS (2)
  - DRUG INTERACTION [None]
  - THERAPY REGIMEN CHANGED [None]
